FAERS Safety Report 4628903-3 (Version None)
Quarter: 2005Q2

REPORT INFORMATION
  Report Type: 
  Country: None (occurrence: None)
  Receive Date: 20050406
  Receipt Date: 20050323
  Transmission Date: 20051028
  Serious: Yes (Hospitalization, Other)
  Sender: FDA-Public Use
  Company Number: 2005049843

PATIENT
  Age: 29 Year
  Sex: Female
  Weight: 68.0396 kg

DRUGS (2)
  1. DETROL LA [Suspect]
     Indication: CYSTITIS INTERSTITIAL
     Dosage: 4 MG, ORAL
     Route: 048
     Dates: start: 20040401, end: 20040101
  2. LANSOPRAZOLE [Concomitant]

REACTIONS (6)
  - CERVIX DISORDER [None]
  - DRUG EXPOSURE DURING PREGNANCY [None]
  - HORMONE LEVEL ABNORMAL [None]
  - POLLAKIURIA [None]
  - PREMATURE LABOUR [None]
  - URINARY TRACT DISORDER [None]
